FAERS Safety Report 9105790 (Version 1)
Quarter: 2013Q1

REPORT INFORMATION
  Report Type: Spontaneous
  Country: US (occurrence: US)
  Receive Date: 20130220
  Receipt Date: 20130220
  Transmission Date: 20140127
  Serious: No
  Sender: FDA-Public Use
  Company Number: US-PFIZER INC-2013061436

PATIENT
  Sex: Female

DRUGS (2)
  1. LYRICA [Suspect]
     Indication: CERVICAL SPINAL STENOSIS
     Dosage: 25 MG DAILY
     Dates: start: 2013
  2. LYRICA [Suspect]
     Dosage: 175 MG DAILY

REACTIONS (4)
  - Insomnia [Unknown]
  - Hunger [Unknown]
  - Agitation [Unknown]
  - Dizziness [Unknown]
